FAERS Safety Report 12108910 (Version 1)
Quarter: 2016Q1

REPORT INFORMATION
  Report Type: Spontaneous
  Country: GH (occurrence: GH)
  Receive Date: 20160224
  Receipt Date: 20160224
  Transmission Date: 20160526
  Serious: Yes (Hospitalization)
  Sender: FDA-Public Use
  Company Number: GH-ASTRAZENECA-2016SE18249

PATIENT
  Age: 29 Year
  Sex: Female

DRUGS (1)
  1. MERONEM [Suspect]
     Active Substance: MEROPENEM
     Indication: RECTAL ABSCESS
     Route: 042

REACTIONS (3)
  - Dyspnoea [Recovered/Resolved]
  - Oxygen saturation decreased [Recovered/Resolved]
  - Hypersensitivity [Recovered/Resolved]
